FAERS Safety Report 9319524 (Version 1)
Quarter: 2013Q2

REPORT INFORMATION
  Report Type: Spontaneous
  Country: US (occurrence: US)
  Receive Date: 20130530
  Receipt Date: 20130530
  Transmission Date: 20140414
  Serious: No
  Sender: FDA-Public Use
  Company Number: US-GLAXOSMITHKLINE-A0995183A

PATIENT
  Age: 55 Year
  Sex: Female

DRUGS (2)
  1. FLOLAN [Suspect]
     Indication: PULMONARY ARTERIAL HYPERTENSION
     Dosage: 30NGKM UNKNOWN
     Route: 065
     Dates: start: 20120907
  2. DOBUTAMINE [Concomitant]
     Route: 065

REACTIONS (3)
  - Headache [Not Recovered/Not Resolved]
  - Dizziness [Not Recovered/Not Resolved]
  - Nausea [Not Recovered/Not Resolved]
